FAERS Safety Report 22259720 (Version 1)
Quarter: 2023Q2

REPORT INFORMATION
  Report Type: Spontaneous
  Country: US (occurrence: None)
  Receive Date: 20230426
  Receipt Date: 20230426
  Transmission Date: 20230722
  Serious: Yes (Other)
  Sender: FDA-Public Use
  Company Number: None

PATIENT
  Age: 29 Year
  Sex: Female
  Weight: 99 kg

DRUGS (20)
  1. MEDROXYPROGESTERONE ACETATE [Suspect]
     Active Substance: MEDROXYPROGESTERONE ACETATE
     Indication: Endometriosis
     Dosage: OTHER QUANTITY : 1 INJECTION(S);?OTHER FREQUENCY : EVERY 10 WEEKS;?
     Route: 030
     Dates: start: 20120101
  2. BACLOFEN [Concomitant]
     Active Substance: BACLOFEN
  3. NUCYNTA [Concomitant]
     Active Substance: TAPENTADOL HYDROCHLORIDE
  4. OXYCODONE [Concomitant]
     Active Substance: OXYCODONE
  5. VERAPAMIL IR [Concomitant]
  6. ORILISSA [Concomitant]
     Active Substance: ELAGOLIX SODIUM
  7. DEPO-PROVERA [Concomitant]
  8. DEXEDRINE [Concomitant]
     Active Substance: DEXTROAMPHETAMINE SULFATE
  9. WAKIX [Concomitant]
     Active Substance: PITOLISANT HYDROCHLORIDE
  10. NEXIUM [Concomitant]
     Active Substance: ESOMEPRAZOLE MAGNESIUM
  11. FAMOTIDINE [Concomitant]
     Active Substance: FAMOTIDINE
  12. ENBREL [Concomitant]
     Active Substance: ETANERCEPT
  13. ATARAX [Concomitant]
     Active Substance: HYDROXYZINE HYDROCHLORIDE
  14. VITAMIN D [Concomitant]
     Active Substance: VITAMIN D NOS
  15. VITAMIN B12 [Concomitant]
     Active Substance: CYANOCOBALAMIN
  16. VITAMIN B12 [Concomitant]
     Active Substance: CYANOCOBALAMIN
  17. FOLATE SODIUM [Concomitant]
     Active Substance: FOLATE SODIUM
  18. TYLENOL [Concomitant]
     Active Substance: ACETAMINOPHEN
  19. EXCEDRIN TENSION HEADACHE [Concomitant]
     Active Substance: ACETAMINOPHEN\CAFFEINE
  20. BENADRYL [Concomitant]
     Active Substance: DIPHENHYDRAMINE HYDROCHLORIDE

REACTIONS (5)
  - Injection site abscess [None]
  - Staphylococcal infection [None]
  - Suspected transmission of an infectious agent via product [None]
  - Gastrointestinal disorder [None]
  - Suspected product quality issue [None]

NARRATIVE: CASE EVENT DATE: 20230322
